FAERS Safety Report 6382903-4 (Version None)
Quarter: 2009Q3

REPORT INFORMATION
  Report Type: 
  Country: None (occurrence: None)
  Receive Date: 20090928
  Receipt Date: 20090928
  Transmission Date: 20100115
  Serious: No
  Sender: FDA-Public Use
  Company Number: None

PATIENT
  Age: 58 Year
  Sex: Male
  Weight: 66.14 kg

DRUGS (1)
  1. LORAZEPAM [Suspect]
     Dosage: 2 MG OTHER IM
     Route: 030
     Dates: start: 20081217, end: 20081217

REACTIONS (2)
  - GAIT DISTURBANCE [None]
  - LETHARGY [None]
